FAERS Safety Report 15683298 (Version 3)
Quarter: 2019Q2

REPORT INFORMATION
  Report Type: Report from Study
  Country: DE (occurrence: DE)
  Receive Date: 20181204
  Receipt Date: 20190516
  Transmission Date: 20190711
  Serious: Yes (Hospitalization)
  Sender: FDA-Public Use
  Company Number: DE-ROCHE-2206721

PATIENT
  Age: 66 Year
  Sex: Male

DRUGS (6)
  1. CEFUROXIME. [Interacting]
     Active Substance: CEFUROXIME
     Indication: NASOPHARYNGITIS
     Route: 042
  2. OCREVUS [Suspect]
     Active Substance: OCRELIZUMAB
     Indication: PRIMARY PROGRESSIVE MULTIPLE SCLEROSIS
     Route: 042
     Dates: start: 20180625
  3. OCREVUS [Interacting]
     Active Substance: OCRELIZUMAB
     Route: 042
     Dates: start: 20181203
  4. DRONABINOL. [Suspect]
     Active Substance: DRONABINOL
     Indication: PRODUCT USED FOR UNKNOWN INDICATION
     Route: 065
  5. TAMSULOSIN [Concomitant]
     Active Substance: TAMSULOSIN
     Route: 065
  6. CEFUROXIME. [Interacting]
     Active Substance: CEFUROXIME
     Indication: CYSTITIS

REACTIONS (11)
  - Mobility decreased [Recovered/Resolved]
  - Nasopharyngitis [Recovered/Resolved]
  - Muscle spasticity [Recovered/Resolved]
  - Urinary incontinence [Recovered/Resolved]
  - Anal incontinence [Recovered/Resolved]
  - Drug interaction [Unknown]
  - Overdose [Unknown]
  - Incontinence [Unknown]
  - Cystitis [Recovered/Resolved]
  - Body temperature increased [Recovered/Resolved]
  - Gait disturbance [Recovered/Resolved]

NARRATIVE: CASE EVENT DATE: 20181024
